FAERS Safety Report 19964567 (Version 2)
Quarter: 2021Q4

REPORT INFORMATION
  Report Type: Spontaneous
  Country: US (occurrence: US)
  Receive Date: 20211018
  Receipt Date: 20211102
  Transmission Date: 20220303
  Serious: Yes (Hospitalization, Other)
  Sender: FDA-Public Use
  Company Number: US-UPSHER-SMITH LABORATORIES, LLC-2021USL00695

PATIENT

DRUGS (1)
  1. AMIODARONE HYDROCHLORIDE [Suspect]
     Active Substance: AMIODARONE HYDROCHLORIDE

REACTIONS (5)
  - Hyperglycaemia [Not Recovered/Not Resolved]
  - Toxicity to various agents [Unknown]
  - Pneumonia [Unknown]
  - Neoplasm malignant [Unknown]
  - Cardiac disorder [Unknown]
